FAERS Safety Report 9188257 (Version 5)
Quarter: 2013Q3

REPORT INFORMATION
  Report Type: Spontaneous
  Country: IE (occurrence: IE)
  Receive Date: 20130325
  Receipt Date: 20130923
  Transmission Date: 20140515
  Serious: Yes (Hospitalization)
  Sender: FDA-Public Use
  Company Number: IE-ASTRAZENECA-2013SE18845

PATIENT
  Age: 89 Day
  Sex: Female

DRUGS (4)
  1. SYNAGIS [Suspect]
     Indication: PREMATURE BABY
     Route: 030
     Dates: start: 20130215, end: 20130412
  2. FERINSOL [Concomitant]
  3. ABIDEC [Concomitant]
  4. VITAMIN D3 [Concomitant]
     Indication: VITAMIN SUPPLEMENTATION
     Route: 048

REACTIONS (2)
  - Constipation [Recovered/Resolved]
  - Bronchiolitis [Recovered/Resolved]
